FAERS Safety Report 6837394-3 (Version None)
Quarter: 2010Q3

REPORT INFORMATION
  Report Type: 
  Country: None (occurrence: None)
  Receive Date: 20100713
  Receipt Date: 20070510
  Transmission Date: 20110219
  Serious: No
  Sender: FDA-Public Use
  Company Number: US-PFIZER INC-2007039231

PATIENT
  Age: 70 Year
  Sex: Female
  Weight: 44.545 kg

DRUGS (19)
  1. CHANTIX [Suspect]
     Indication: SMOKING CESSATION THERAPY
     Dates: start: 20070401
  2. IPRATROPIUM [Concomitant]
  3. METOPROLOL [Concomitant]
  4. OMEPRAZOLE [Concomitant]
  5. LISINOPRIL [Concomitant]
  6. CLONAZEPAM [Concomitant]
  7. ISOSORBIDE [Concomitant]
  8. FUROSEMIDE [Concomitant]
  9. ACETYLSALICYLIC ACID [Concomitant]
  10. LORAZEPAM [Concomitant]
  11. LOVASTATIN [Concomitant]
  12. PREDNISONE [Concomitant]
  13. ONE-A-DAY [Concomitant]
  14. MULTI-VITAMINS [Concomitant]
  15. VITACAL [Concomitant]
  16. COMBIVENT [Concomitant]
  17. SALBUTAMOL [Concomitant]
  18. LEVOSALBUTAMOL [Concomitant]
  19. BUDESONIDE [Concomitant]

REACTIONS (1)
  - CONSTIPATION [None]
